FAERS Safety Report 21106421 (Version 2)
Quarter: 2022Q3

REPORT INFORMATION
  Report Type: Spontaneous
  Country: IT (occurrence: IT)
  Receive Date: 20220720
  Receipt Date: 20220728
  Transmission Date: 20221027
  Serious: No
  Sender: FDA-Public Use
  Company Number: IT-OTSUKA-2022_035257

PATIENT
  Sex: Male

DRUGS (1)
  1. ABILIFY [Suspect]
     Active Substance: ARIPIPRAZOLE
     Indication: Product used for unknown indication
     Dosage: UNK
     Route: 065

REACTIONS (12)
  - Spinal disorder [Recovering/Resolving]
  - Sarcopenia [Unknown]
  - Dental caries [Unknown]
  - Impaired work ability [Unknown]
  - Immune system disorder [Unknown]
  - Hepatic steatosis [Unknown]
  - Mental disorder [Unknown]
  - Sleep disorder [Unknown]
  - Cognitive disorder [Unknown]
  - Fatigue [Unknown]
  - Sedation [Unknown]
  - Therapeutic response unexpected [Unknown]
